FAERS Safety Report 5364790-6 (Version None)
Quarter: 2007Q2

REPORT INFORMATION
  Report Type: 
  Country: None (occurrence: None)
  Receive Date: 20070621
  Receipt Date: 20070618
  Transmission Date: 20071010
  Serious: Yes (Other)
  Sender: FDA-Public Use
  Company Number: PHNU2007DE01455

PATIENT
  Age: 71 Year
  Sex: Female
  Weight: 85 kg

DRUGS (3)
  1. AREDIA [Suspect]
  2. ZOMETA [Suspect]
     Indication: METASTASES TO BONE
     Dosage: 4 MG, QMO
     Route: 042
     Dates: start: 20050601, end: 20070301
  3. TAMOXIFEN CITRATE [Concomitant]
     Indication: BREAST CANCER
     Dosage: 20 MG, QD
     Route: 048
     Dates: start: 20040101

REACTIONS (2)
  - HISTOLOGY ABNORMAL [None]
  - OSTEONECROSIS [None]
